FAERS Safety Report 4553818-9 (Version None)
Quarter: 2004Q4

REPORT INFORMATION
  Report Type: 
  Country: None (occurrence: None)
  Receive Date: 20041227
  Receipt Date: 20041028
  Transmission Date: 20050328
  Serious: No
  Sender: FDA-Public Use
  Company Number: 04P-163-0279463-00

PATIENT
  Age: 42 Year
  Sex: Female
  Weight: 145.151 kg

DRUGS (13)
  1. HUMIRA [Suspect]
     Indication: RHEUMATOID ARTHRITIS
     Dosage: 40 MG, 1 IN 2 WK, SUBCUTANEOUS
     Route: 058
     Dates: start: 20041009
  2. BENICAR [Concomitant]
  3. RABEPRAZOLE SODIUM [Concomitant]
  4. LEVOTHYROXINE SODIUM [Concomitant]
  5. ALLOPURINOL [Concomitant]
  6. COLCHICIINE [Concomitant]
  7. ATORVASTATIN [Concomitant]
  8. METAXALONE [Concomitant]
  9. SERETIDE MITE [Concomitant]
  10. SINGULAIR [Concomitant]
  11. FEXOFENADINE HYDROCHLORIDE [Concomitant]
  12. FLUTICASONE PROPIONATE [Concomitant]
  13. BUPROPION HYDROCHLORIDE [Concomitant]

REACTIONS (1)
  - INJECTION SITE ERYTHEMA [None]
